FAERS Safety Report 7132572-0 (Version None)
Quarter: 2010Q4

REPORT INFORMATION
  Report Type: 
  Country: None (occurrence: None)
  Receive Date: 20101202
  Receipt Date: 20101123
  Transmission Date: 20110411
  Serious: Yes (Other)
  Sender: FDA-Public Use
  Company Number: GB-NOVOPROD-317903

PATIENT
  Age: 55 Year
  Sex: Male

DRUGS (3)
  1. NOVOLIN 70/30 [Suspect]
     Indication: OFF LABEL USE
  2. MORPHINE SULFATE [Concomitant]
     Dosage: 0.012 G, UNK
  3. SCOPOLAMINE [Concomitant]
     Dosage: 0.0005 G, UNK

REACTIONS (3)
  - HYPOGLYCAEMIC COMA [None]
  - INTENTIONAL DRUG MISUSE [None]
  - VICTIM OF CRIME [None]
